FAERS Safety Report 12317773 (Version 1)
Quarter: 2016Q2

REPORT INFORMATION
  Report Type: Spontaneous
  Country: US (occurrence: US)
  Receive Date: 20160429
  Receipt Date: 20160429
  Transmission Date: 20160815
  Serious: No
  Sender: FDA-Public Use
  Company Number: US-BAUSCH-BL-2015-019060

PATIENT
  Sex: Female
  Weight: 59.02 kg

DRUGS (1)
  1. ALREX [Suspect]
     Active Substance: LOTEPREDNOL ETABONATE
     Indication: BLEPHARAL PIGMENTATION
     Dosage: 1 DROP IN THE RIGHT EYE JUST FOR 1 DAY
     Route: 047
     Dates: start: 201504, end: 20150801

REACTIONS (6)
  - Pain [Recovering/Resolving]
  - Swelling [Recovered/Resolved]
  - Eye discharge [Recovered/Resolved]
  - Rash macular [Recovering/Resolving]
  - Eye irritation [Recovering/Resolving]
  - Erythema [Recovering/Resolving]
